FAERS Safety Report 15076392 (Version 3)
Quarter: 2020Q3

REPORT INFORMATION
  Report Type: Report from Study
  Country: AU (occurrence: AU)
  Receive Date: 20180627
  Receipt Date: 20180731
  Transmission Date: 20201104
  Serious: Yes (Hospitalization)
  Sender: FDA-Public Use
  Company Number: AU-JNJFOC-20180624691

PATIENT
  Age: 64 Year
  Sex: Male

DRUGS (32)
  1. CYCLOPHOSPHAMIDE. [Suspect]
     Active Substance: CYCLOPHOSPHAMIDE
     Indication: PLASMA CELL MYELOMA
     Route: 065
     Dates: start: 20180222, end: 20180614
  2. PANTOPRAZOLE [Concomitant]
     Active Substance: PANTOPRAZOLE
     Indication: GASTROOESOPHAGEAL REFLUX DISEASE
     Route: 048
     Dates: start: 201801
  3. HYDRALAZINE [Concomitant]
     Active Substance: HYDRALAZINE HYDROCHLORIDE
     Indication: HYPERTENSION
     Route: 048
  4. LERCANIDIPINE [Concomitant]
     Active Substance: LERCANIDIPINE
     Indication: HYPERTENSION
     Route: 048
     Dates: start: 2006
  5. LACTULOSE. [Concomitant]
     Active Substance: LACTULOSE
     Indication: HYPERKALAEMIA
     Route: 048
     Dates: start: 20180301, end: 20180302
  6. MOXONIDINE [Concomitant]
     Active Substance: MOXONIDINE
     Indication: HYPERTENSION
     Route: 048
  7. MUPIROCIN. [Concomitant]
     Active Substance: MUPIROCIN
     Indication: INFECTION PROPHYLAXIS
     Route: 061
     Dates: start: 201707
  8. DEXAMETHASONE. [Suspect]
     Active Substance: DEXAMETHASONE
     Indication: PLASMA CELL MYELOMA
     Route: 065
     Dates: start: 20180222, end: 20180614
  9. ATORVASTATIN [Concomitant]
     Active Substance: ATORVASTATIN
     Indication: HYPERLIPIDAEMIA
     Route: 048
     Dates: start: 1998
  10. METOPROLOL. [Concomitant]
     Active Substance: METOPROLOL
     Indication: HYPERTENSION
     Route: 048
     Dates: start: 1998
  11. LANTUS [Concomitant]
     Active Substance: INSULIN GLARGINE
     Indication: DIABETES MELLITUS
     Dosage: VARIABLE DOSE
     Route: 058
     Dates: start: 2009
  12. LANTUS [Concomitant]
     Active Substance: INSULIN GLARGINE
     Indication: DIABETES MELLITUS
     Route: 058
     Dates: start: 20180617, end: 20180617
  13. METOCLOPRAMIDE. [Concomitant]
     Active Substance: METOCLOPRAMIDE
     Indication: NAUSEA
     Route: 048
     Dates: start: 20180222
  14. VALACICLOVIR [Concomitant]
     Active Substance: VALACYCLOVIR HYDROCHLORIDE
     Indication: ANTIVIRAL PROPHYLAXIS
     Route: 048
     Dates: start: 20180222
  15. AUGMENTIN [Concomitant]
     Active Substance: AMOXICILLIN\CLAVULANATE POTASSIUM
     Indication: PERITONITIS
     Route: 048
     Dates: start: 20180618, end: 20180628
  16. ASPIRIN. [Concomitant]
     Active Substance: ASPIRIN
     Indication: PROPHYLAXIS
     Route: 048
  17. SEVELAMER [Concomitant]
     Active Substance: SEVELAMER
     Indication: HYPERPHOSPHATAEMIA
     Route: 048
     Dates: start: 201802
  18. CALCIUM GLUCONATE. [Concomitant]
     Active Substance: CALCIUM GLUCONATE
     Indication: HYPERKALAEMIA
     Route: 042
     Dates: start: 20180301, end: 20180301
  19. BACTRIM [Concomitant]
     Active Substance: SULFAMETHOXAZOLE\TRIMETHOPRIM
     Indication: PNEUMOCYSTIS JIROVECII PNEUMONIA
     Route: 048
     Dates: start: 20180222
  20. MOVICOL [Concomitant]
     Active Substance: POLYETHYLENE GLYCOL 3350\POTASSIUM CHLORIDE\SODIUM BICARBONATE\SODIUM CHLORIDE
     Indication: CONSTIPATION
     Route: 048
  21. PRAMIPEXOLE. [Concomitant]
     Active Substance: PRAMIPEXOLE
     Indication: RESTLESS LEGS SYNDROME
     Route: 048
     Dates: start: 201707
  22. COLOXYL WITH SENNA [Concomitant]
     Active Substance: DOCUSATE SODIUM\SENNOSIDES A AND B
     Indication: CONSTIPATION PROPHYLAXIS
     Route: 048
     Dates: start: 2017
  23. SODIUM BICARBONATE. [Concomitant]
     Active Substance: SODIUM BICARBONATE
     Indication: DENTAL DISORDER PROPHYLAXIS
     Dates: start: 20180222
  24. DARZALEX [Suspect]
     Active Substance: DARATUMUMAB
     Route: 042
  25. FRUSEMIDE [Concomitant]
     Active Substance: FUROSEMIDE
     Indication: FLUID OVERLOAD
     Route: 048
     Dates: start: 2014
  26. VENLAFAXINE [Concomitant]
     Active Substance: VENLAFAXINE HYDROCHLORIDE
     Indication: DEPRESSION
     Route: 048
     Dates: start: 2016
  27. LACTULOSE. [Concomitant]
     Active Substance: LACTULOSE
     Indication: HYPERKALAEMIA
     Route: 048
     Dates: start: 20180305, end: 20180305
  28. DARZALEX [Suspect]
     Active Substance: DARATUMUMAB
     Indication: PLASMA CELL MYELOMA
     Route: 042
     Dates: start: 20180222, end: 20180607
  29. VELCADE [Suspect]
     Active Substance: BORTEZOMIB
     Indication: PLASMA CELL MYELOMA
     Dates: start: 20180222, end: 20180614
  30. CALCIUM CARBONATE. [Concomitant]
     Active Substance: CALCIUM CARBONATE
     Indication: MINERAL SUPPLEMENTATION
     Route: 048
  31. ARANESP [Concomitant]
     Active Substance: DARBEPOETIN ALFA
     Indication: ANAEMIA
     Route: 058
     Dates: start: 201707
  32. TEMAZEPAM. [Concomitant]
     Active Substance: TEMAZEPAM
     Indication: INSOMNIA
     Route: 048
     Dates: start: 201802

REACTIONS (1)
  - Peritonitis [Recovered/Resolved with Sequelae]

NARRATIVE: CASE EVENT DATE: 20180615
